FAERS Safety Report 8504116-X (Version None)
Quarter: 2012Q3

REPORT INFORMATION
  Report Type: 
  Country: None (occurrence: None)
  Receive Date: 20120711
  Receipt Date: 20120704
  Transmission Date: 20120928
  Serious: Yes (Death, Hospitalization)
  Sender: FDA-Public Use
  Company Number: JP-009507513-2012SP029611

PATIENT

DRUGS (13)
  1. REBETOL [Suspect]
     Indication: HEPATITIS C
     Dosage: 600 MG, QD
     Route: 048
     Dates: start: 20120308, end: 20120412
  2. NERISONA [Concomitant]
     Dosage: UNK
     Route: 061
     Dates: start: 20120515
  3. PEGINTERFERON ALFA-2B [Suspect]
     Indication: HEPATITIS C
     Dosage: 1.5 A?G/KG, UNKNOWN
     Route: 058
     Dates: start: 20120308
  4. LANSOPRAZOLE [Concomitant]
     Indication: PROPHYLAXIS
     Dosage: 15 MG, QD
     Route: 048
     Dates: start: 20120312
  5. CLARITIN REDITABS [Concomitant]
     Dosage: 10 MG, QD
     Route: 048
     Dates: start: 20120308
  6. CLARITIN [Concomitant]
     Dosage: 1 DF, QD
     Route: 048
     Dates: start: 20120502, end: 20120514
  7. ANTEBATE [Concomitant]
     Dosage: UNK
     Route: 061
     Dates: start: 20120511
  8. LIDOMEX [Concomitant]
     Dosage: UNK
     Route: 061
     Dates: start: 20120515
  9. REBETOL [Suspect]
     Dosage: 200 MG, QD
     Route: 048
     Dates: start: 20120419
  10. REBETOL [Suspect]
     Dosage: 400 MG, QD
     Route: 048
     Dates: start: 20120412, end: 20120419
  11. TELAPREVIR [Suspect]
     Indication: HEPATITIS C
     Dosage: 1500 MG, QD
     Route: 048
     Dates: start: 20120308, end: 20120517
  12. CELESTAMINE TAB [Concomitant]
     Indication: ECZEMA
     Dosage: 3 DF, QD
     Route: 048
     Dates: start: 20120502
  13. OLOPATADINE HCL [Concomitant]
     Dosage: 2 DF, QD
     Route: 048
     Dates: start: 20120515

REACTIONS (1)
  - RASH PAPULAR [None]
